FAERS Safety Report 4268662-X (Version None)
Quarter: 2004Q1

REPORT INFORMATION
  Report Type: 
  Country: None (occurrence: None)
  Receive Date: 20040108
  Receipt Date: 20031229
  Transmission Date: 20041129
  Serious: Yes (Other)
  Sender: FDA-Public Use
  Company Number: CIP03003441

PATIENT
  Age: 64 Year
  Sex: Female

DRUGS (4)
  1. ACTONEL(RISEDRONATE SODIUM) TABLET, 35MG [Suspect]
     Indication: OSTEOPOROSIS
     Dosage: 35 MG, ORAL
     Route: 048
     Dates: start: 20031125, end: 20031202
  2. RALOXIFENE (RALOXIFENE) [Suspect]
     Indication: OSTEOPOROSIS
     Dosage: 1 DAILY, ORAL
     Route: 048
     Dates: start: 19980901, end: 20031123
  3. ACETAMINOPHEN [Suspect]
     Dosage: ORAL
     Route: 048
  4. ESPIDIFEN(IBUPROFEN) [Suspect]
     Indication: OSTEOPOROSIS
     Dosage: ORAL
     Route: 048

REACTIONS (3)
  - ARTHRALGIA [None]
  - BREAST PAIN [None]
  - CHEST PAIN [None]
